FAERS Safety Report 6927448-5 (Version None)
Quarter: 2010Q3

REPORT INFORMATION
  Report Type: 
  Country: None (occurrence: None)
  Receive Date: 20100817
  Receipt Date: 20100805
  Transmission Date: 20110219
  Serious: Yes (Other)
  Sender: FDA-Public Use
  Company Number: US-JNJFOC-20100802130

PATIENT
  Age: 57 Year
  Sex: Female
  Weight: 59.88 kg

DRUGS (5)
  1. REMICADE [Suspect]
     Indication: ANKYLOSING SPONDYLITIS
     Route: 042
  2. VOLTAREN [Concomitant]
  3. SULFAZINE [Concomitant]
  4. PROTONIX [Concomitant]
  5. CADENS [Concomitant]

REACTIONS (4)
  - ANTINUCLEAR ANTIBODY POSITIVE [None]
  - ANTIPHOSPHOLIPID ANTIBODIES POSITIVE [None]
  - BETA-2 GLYCOPROTEIN ANTIBODY POSITIVE [None]
  - DOUBLE STRANDED DNA ANTIBODY [None]
